FAERS Safety Report 26154686 (Version 1)
Quarter: 2025Q4

REPORT INFORMATION
  Report Type: Spontaneous
  Country: US (occurrence: US)
  Receive Date: 20251215
  Receipt Date: 20251215
  Transmission Date: 20260118
  Serious: Yes (Other)
  Sender: NOVARTIS
  Company Number: US-002147023-NVSC2025US190214

PATIENT
  Age: 43 Year
  Sex: Female

DRUGS (2)
  1. MYFORTIC [Suspect]
     Active Substance: MYCOPHENOLATE SODIUM
     Indication: Product used for unknown indication
     Dosage: UNK
     Route: 065
  2. LUPKYNIS [Suspect]
     Active Substance: VOCLOSPORIN
     Indication: Lupus nephritis
     Dosage: 23.7 MG, BID
     Route: 048
     Dates: start: 20230210

REACTIONS (11)
  - Deep vein thrombosis [Unknown]
  - Systemic lupus erythematosus [Unknown]
  - Renal-limited thrombotic microangiopathy [Unknown]
  - Urine protein/creatinine ratio increased [Unknown]
  - Blood creatinine increased [Not Recovered/Not Resolved]
  - Complement factor C3 decreased [Unknown]
  - Beta-2 glycoprotein antibody positive [Unknown]
  - Cardiolipin antibody positive [Unknown]
  - Peripheral swelling [Unknown]
  - Fatigue [Unknown]
  - Glomerular filtration rate decreased [Unknown]

NARRATIVE: CASE EVENT DATE: 20250601
